FAERS Safety Report 21476700 (Version 1)
Quarter: 2022Q4

REPORT INFORMATION
  Report Type: Spontaneous
  Country: FR (occurrence: FR)
  Receive Date: 20221019
  Receipt Date: 20221019
  Transmission Date: 20230112
  Serious: Yes (Other)
  Sender: FDA-Public Use
  Company Number: None

PATIENT
  Age: 59 Year
  Sex: Male

DRUGS (5)
  1. PACLITAXEL [Suspect]
     Active Substance: PACLITAXEL
     Indication: Bronchial carcinoma
     Dates: start: 20220718, end: 20220718
  2. AVASTIN [Suspect]
     Active Substance: BEVACIZUMAB
     Indication: Bronchial carcinoma
     Dosage: 25 MG/ML
     Dates: start: 20220718, end: 20220718
  3. PACLITAXEL [Suspect]
     Active Substance: PACLITAXEL
     Indication: Bronchial carcinoma
     Dates: start: 20220801, end: 20220801
  4. PACLITAXEL [Suspect]
     Active Substance: PACLITAXEL
     Indication: Bronchial carcinoma
     Dates: start: 20220725, end: 20220725
  5. AVASTIN [Suspect]
     Active Substance: BEVACIZUMAB
     Indication: Bronchial carcinoma
     Dosage: 25 MG/ML
     Dates: start: 20220801, end: 20220801

REACTIONS (2)
  - Gastrointestinal perforation [Not Recovered/Not Resolved]
  - Peritonitis [Not Recovered/Not Resolved]

NARRATIVE: CASE EVENT DATE: 20220814
